FAERS Safety Report 18792119 (Version 2)
Quarter: 2021Q1

REPORT INFORMATION
  Report Type: Spontaneous
  Country: US (occurrence: US)
  Receive Date: 20210127
  Receipt Date: 20210209
  Transmission Date: 20210419
  Serious: Yes (Other)
  Sender: FDA-Public Use
  Company Number: US-SA-2021SA021411

PATIENT
  Sex: Male

DRUGS (3)
  1. FABRAZYME [Suspect]
     Active Substance: AGALSIDASE BETA
     Indication: FABRY^S DISEASE
  2. FABRAZYME [Suspect]
     Active Substance: AGALSIDASE BETA
     Indication: NEUTROPENIA
  3. FABRAZYME [Suspect]
     Active Substance: AGALSIDASE BETA
     Indication: RENAL TRANSPLANT
     Dosage: 68 MG, QOW
     Route: 042
     Dates: start: 201609

REACTIONS (2)
  - Condition aggravated [Unknown]
  - Dyspnoea [Unknown]
